FAERS Safety Report 5770647-9 (Version None)
Quarter: 2008Q2

REPORT INFORMATION
  Report Type: 
  Country: None (occurrence: None)
  Receive Date: 20080613
  Receipt Date: 20080508
  Transmission Date: 20081010
  Serious: No
  Sender: FDA-Public Use
  Company Number: US-ABBOTT-08P-163-0451030-00

PATIENT
  Sex: Female
  Weight: 136.81 kg

DRUGS (6)
  1. HUMIRA [Suspect]
     Indication: PSORIATIC ARTHROPATHY
     Route: 058
     Dates: start: 20070901, end: 20080101
  2. HUMIRA [Suspect]
     Route: 058
     Dates: start: 20080401
  3. ESCITALOPRAM OXALATE [Concomitant]
     Indication: DEPRESSION
     Route: 048
     Dates: start: 20070101
  4. NORMENSAL [Concomitant]
     Indication: MENSTRUAL DISORDER
     Route: 048
     Dates: start: 20080101
  5. NORGESTIMATE AND ETHINYL ESTRADIOL [Concomitant]
     Indication: MENSTRUAL DISORDER
     Route: 048
     Dates: start: 20080101, end: 20080101
  6. IBUROFEN [Concomitant]
     Indication: ARTHRALGIA
     Route: 048
     Dates: start: 20060101

REACTIONS (1)
  - TOOTHACHE [None]
